FAERS Safety Report 6942394-9 (Version None)
Quarter: 2010Q3

REPORT INFORMATION
  Report Type: 
  Country: None (occurrence: None)
  Receive Date: 20100826
  Receipt Date: 20100822
  Transmission Date: 20110219
  Serious: Yes (Death)
  Sender: FDA-Public Use
  Company Number: PHHY2010MX55415

PATIENT
  Age: 80 Year
  Sex: Female

DRUGS (2)
  1. STALEVO 100 [Suspect]
     Indication: PARKINSON'S DISEASE
     Dosage: ONE TABLET (50/12.5/200  MG ) PER DAY
     Route: 048
     Dates: start: 20100601, end: 20100801
  2. LARIDOXINE [Concomitant]

REACTIONS (1)
  - DEATH [None]
